FAERS Safety Report 18202006 (Version 2)
Quarter: 2020Q4

REPORT INFORMATION
  Report Type: Report from Study
  Country: US (occurrence: US)
  Receive Date: 20200827
  Receipt Date: 20201207
  Transmission Date: 20210113
  Serious: Yes (Hospitalization, Other)
  Sender: FDA-Public Use
  Company Number: US-BIOVITRUM-2020US4559

PATIENT
  Age: 59 Year
  Sex: Male

DRUGS (1)
  1. KINERET [Suspect]
     Active Substance: ANAKINRA
     Indication: GOUT
     Dosage: 100 MILLIGRAM DAILY FOR 3 DAYS FOR GOUT ATTACKS.
     Route: 058
     Dates: start: 20200515

REACTIONS (7)
  - Neuropathy peripheral [Unknown]
  - Back pain [Unknown]
  - Illness [Unknown]
  - Gastroenteritis viral [Unknown]
  - Rib fracture [Unknown]
  - Off label use [Recovered/Resolved]
  - Cough [Unknown]

NARRATIVE: CASE EVENT DATE: 20200515
